FAERS Safety Report 11680124 (Version 2)
Quarter: 2015Q4

REPORT INFORMATION
  Report Type: Spontaneous
  Country: US (occurrence: US)
  Receive Date: 20151027
  Receipt Date: 20151104
  Transmission Date: 20160304
  Serious: No
  Sender: FDA-Public Use
  Company Number: US-ELI_LILLY_AND_COMPANY-US200912005338

PATIENT
  Sex: Female

DRUGS (6)
  1. CLARITIN-D 12 HOUR [Concomitant]
     Active Substance: LORATADINE\PSEUDOEPHEDRINE SULFATE
  2. FORTEO [Suspect]
     Active Substance: TERIPARATIDE
     Dosage: 20 UG, DAILY (1/D)
     Route: 065
  3. FORTEO [Suspect]
     Active Substance: TERIPARATIDE
     Indication: OSTEOPOROSIS
     Dosage: 20 UG, DAILY (1/D)
     Route: 065
     Dates: start: 20091104
  4. LORATADINE. [Concomitant]
     Active Substance: LORATADINE
     Indication: HYPERSENSITIVITY
     Dosage: UNK, DAILY (1/D)
  5. BENADRYL [Concomitant]
     Active Substance: DIPHENHYDRAMINE HYDROCHLORIDE
     Indication: HYPERSENSITIVITY
     Dates: start: 2010, end: 2010
  6. FORTEO [Suspect]
     Active Substance: TERIPARATIDE
     Dosage: 20 UG, DAILY (1/D)
     Route: 065

REACTIONS (10)
  - Hypersensitivity [Not Recovered/Not Resolved]
  - Ocular discomfort [Recovering/Resolving]
  - Somnolence [Unknown]
  - Iron deficiency [Unknown]
  - Asthenia [Unknown]
  - Nausea [Unknown]
  - Fatigue [Unknown]
  - Vitamin D decreased [Unknown]
  - Blood parathyroid hormone decreased [Unknown]
  - Eye swelling [Recovering/Resolving]

NARRATIVE: CASE EVENT DATE: 2009
